FAERS Safety Report 9690180 (Version 1)
Quarter: 2013Q4

REPORT INFORMATION
  Report Type: Report from Study
  Country: CA (occurrence: CA)
  Receive Date: 20131115
  Receipt Date: 20131115
  Transmission Date: 20140711
  Serious: Yes (Hospitalization)
  Sender: FDA-Public Use
  Company Number: CA-JNJFOC-20131107647

PATIENT
  Sex: Female
  Weight: 108.86 kg

DRUGS (1)
  1. REMICADE [Suspect]
     Indication: COLITIS ULCERATIVE
     Route: 042

REACTIONS (4)
  - Colectomy [Unknown]
  - Malaise [Unknown]
  - Blood albumin abnormal [Unknown]
  - C-reactive protein increased [Unknown]
